FAERS Safety Report 11465663 (Version 1)
Quarter: 2015Q3

REPORT INFORMATION
  Report Type: Report from Study
  Country: PT (occurrence: PT)
  Receive Date: 20150907
  Receipt Date: 20150907
  Transmission Date: 20151125
  Serious: Yes (Other)
  Sender: FDA-Public Use
  Company Number: PT-BIOGENIDEC-2015BI050065

PATIENT
  Sex: Female

DRUGS (2)
  1. AVONEX [Suspect]
     Active Substance: INTERFERON BETA-1A
     Indication: SECONDARY PROGRESSIVE MULTIPLE SCLEROSIS
     Route: 030
     Dates: start: 2005, end: 2015
  2. AVONEX [Suspect]
     Active Substance: INTERFERON BETA-1A
     Indication: SECONDARY PROGRESSIVE MULTIPLE SCLEROSIS
     Route: 030
     Dates: start: 20150828

REACTIONS (19)
  - Fine motor skill dysfunction [Unknown]
  - Micturition urgency [Not Recovered/Not Resolved]
  - Coordination abnormal [Unknown]
  - Anxiety [Unknown]
  - Malaise [Unknown]
  - Fall [Recovered/Resolved]
  - Ataxia [Unknown]
  - Depressed mood [Unknown]
  - Muscle spasms [Unknown]
  - Sciatica [Not Recovered/Not Resolved]
  - Radiculopathy [Not Recovered/Not Resolved]
  - Impaired self-care [Not Recovered/Not Resolved]
  - Pain [Unknown]
  - Balance disorder [Unknown]
  - Fatigue [Unknown]
  - Gait disturbance [Unknown]
  - Mobility decreased [Not Recovered/Not Resolved]
  - Multiple sclerosis relapse [Recovered/Resolved with Sequelae]
  - Paraparesis [Not Recovered/Not Resolved]
